FAERS Safety Report 9769402 (Version 2)
Quarter: 2014Q1

REPORT INFORMATION
  Report Type: Report from Study
  Country: DE (occurrence: DE)
  Receive Date: 20131218
  Receipt Date: 20140110
  Transmission Date: 20141002
  Serious: Yes (Death, Other)
  Sender: FDA-Public Use
  Company Number: DE-ABBVIE-13P-062-1180310-00

PATIENT
  Age: 90 Year
  Sex: Male

DRUGS (1)
  1. LEUPRORELIN DEPOT [Suspect]
     Indication: PROSTATE CANCER
     Route: 058
     Dates: start: 20120521, end: 20130502

REACTIONS (1)
  - Prostate cancer [Fatal]
